FAERS Safety Report 19234132 (Version 1)
Quarter: 2021Q2

REPORT INFORMATION
  Report Type: Spontaneous
  Country: CA (occurrence: CA)
  Receive Date: 20210508
  Receipt Date: 20210508
  Transmission Date: 20210717
  Serious: Yes (Other)
  Sender: FDA-Public Use
  Company Number: CA-ICU MEDICAL, INC.-ICU2021CA00004

PATIENT

DRUGS (1)
  1. 0.9% SODIUM CHLORIDE INJECTION USP (100 ML) [Suspect]
     Active Substance: SODIUM CHLORIDE
     Indication: PRODUCT USED FOR UNKNOWN INDICATION
     Route: 042

REACTIONS (2)
  - Wrong technique in device usage process [Unknown]
  - Haemorrhage [Unknown]
